FAERS Safety Report 7772409-X (Version None)
Quarter: 2011Q3

REPORT INFORMATION
  Report Type: 
  Country: None (occurrence: None)
  Receive Date: 20110922
  Receipt Date: 20101206
  Transmission Date: 20111222
  Serious: No
  Sender: FDA-Public Use
  Company Number: US-ASTRAZENECA-2010SE57820

PATIENT
  Age: 51 Year
  Sex: Female
  Weight: 54.4 kg

DRUGS (4)
  1. LAMICTAL [Concomitant]
  2. SEROQUEL [Suspect]
     Indication: BIPOLAR DISORDER
     Route: 048
     Dates: start: 20070101
  3. SEROQUEL [Suspect]
     Route: 048
     Dates: start: 20100101
  4. SEROQUEL [Suspect]
     Route: 048

REACTIONS (3)
  - DRUG EFFECT DELAYED [None]
  - AGITATION [None]
  - DRUG INTOLERANCE [None]
